FAERS Safety Report 11259452 (Version 1)
Quarter: 2015Q3

REPORT INFORMATION
  Report Type: Spontaneous
  Country: US (occurrence: None)
  Receive Date: 20150709
  Receipt Date: 20150709
  Transmission Date: 20151125
  Serious: Yes (Life-Threatening, Hospitalization, Other)
  Sender: FDA-Public Use
  Company Number: None

PATIENT
  Age: 54 Year
  Sex: Female
  Weight: 63 kg

DRUGS (2)
  1. CLOZAPINE ODT 25MG TABS JAZZ [Suspect]
     Active Substance: CLOZAPINE
     Indication: PSYCHOTIC DISORDER
     Dates: start: 20150601, end: 20150618
  2. CLOZAPINE ODT 25MG TABS JAZZ [Suspect]
     Active Substance: CLOZAPINE
     Indication: SCHIZOAFFECTIVE DISORDER
     Dates: start: 20150601, end: 20150618

REACTIONS (4)
  - Eosinophilia [None]
  - Blood alkaline phosphatase increased [None]
  - Pneumonia [None]
  - Transaminases increased [None]

NARRATIVE: CASE EVENT DATE: 20150618
